FAERS Safety Report 4982664-7 (Version None)
Quarter: 2006Q2

REPORT INFORMATION
  Report Type: 
  Country: None (occurrence: None)
  Receive Date: 20060425
  Receipt Date: 20050902
  Transmission Date: 20061013
  Serious: Yes (Hospitalization)
  Sender: FDA-Public Use
  Company Number: US-MERCK-0509USA00575

PATIENT
  Age: 79 Year
  Sex: Female
  Weight: 75 kg

DRUGS (12)
  1. VIOXX [Suspect]
     Indication: ARTHRITIS
     Route: 048
     Dates: start: 19990618, end: 20040930
  2. VIOXX [Suspect]
     Route: 048
     Dates: start: 19990618, end: 20040930
  3. TYLENOL (CAPLET) [Concomitant]
     Route: 065
  4. ASPIRIN [Concomitant]
     Route: 065
  5. TAGAMET [Concomitant]
     Route: 065
  6. POTASSIUM (UNSPECIFIED) [Concomitant]
     Route: 065
  7. LASIX [Concomitant]
     Route: 065
  8. MECLIZINE [Concomitant]
     Route: 065
  9. NORVASC [Concomitant]
     Route: 065
  10. METOPROLOL [Concomitant]
     Route: 065
  11. FERROUS SULFATE [Concomitant]
     Route: 065
  12. COLACE [Concomitant]
     Route: 065

REACTIONS (9)
  - CEREBROVASCULAR ACCIDENT [None]
  - CORONARY ARTERY DISEASE [None]
  - ESCHERICHIA BACTERAEMIA [None]
  - ESCHERICHIA URINARY TRACT INFECTION [None]
  - HYPERLIPIDAEMIA [None]
  - HYPOKALAEMIA [None]
  - MYOCARDIAL INFARCTION [None]
  - NORMOCHROMIC NORMOCYTIC ANAEMIA [None]
  - SEPSIS [None]
